FAERS Safety Report 15884374 (Version 1)
Quarter: 2019Q1

REPORT INFORMATION
  Report Type: Spontaneous
  Country: US (occurrence: US)
  Receive Date: 20190129
  Receipt Date: 20190129
  Transmission Date: 20190417
  Serious: No
  Sender: FDA-Public Use
  Company Number: US-PFIZER INC-2019035909

PATIENT
  Sex: Male

DRUGS (1)
  1. GABAPENTIN. [Suspect]
     Active Substance: GABAPENTIN
     Indication: NEURALGIA
     Dosage: UNK, 4X/DAY

REACTIONS (4)
  - Product use in unapproved indication [Unknown]
  - Restless legs syndrome [Unknown]
  - Condition aggravated [Unknown]
  - Mania [Unknown]

NARRATIVE: CASE EVENT DATE: 201810
